FAERS Safety Report 4995930-6 (Version None)
Quarter: 2006Q2

REPORT INFORMATION
  Report Type: 
  Country: None (occurrence: None)
  Receive Date: 20060508
  Receipt Date: 20051229
  Transmission Date: 20061013
  Serious: Yes (Hospitalization)
  Sender: FDA-Public Use
  Company Number: US-MERCK-0601USA00030

PATIENT
  Age: 66 Year
  Sex: Male
  Weight: 105 kg

DRUGS (2)
  1. VIOXX [Suspect]
     Indication: ARTHRITIS
     Route: 048
     Dates: start: 20011025, end: 20040901
  2. VIOXX [Suspect]
     Route: 048
     Dates: start: 20001130, end: 20011001

REACTIONS (4)
  - ACCIDENT [None]
  - ARTERIAL OCCLUSIVE DISEASE [None]
  - LIMB INJURY [None]
  - MYOCARDIAL INFARCTION [None]
